FAERS Safety Report 10091262 (Version 2)
Quarter: 2014Q2

REPORT INFORMATION
  Report Type: Spontaneous
  Country: US (occurrence: US)
  Receive Date: 20140421
  Receipt Date: 20140527
  Transmission Date: 20141212
  Serious: Yes (Other)
  Sender: FDA-Public Use
  Company Number: US-PFIZER INC-2014108488

PATIENT
  Age: 66 Year
  Sex: Female
  Weight: 112 kg

DRUGS (1)
  1. REVATIO [Suspect]
     Dosage: 4 DF, 3X/DAY

REACTIONS (4)
  - Diabetes mellitus [Unknown]
  - Pulmonary thrombosis [Unknown]
  - Pulmonary hypertension [Unknown]
  - Chronic obstructive pulmonary disease [Unknown]
